FAERS Safety Report 6360242-5 (Version None)
Quarter: 2009Q3

REPORT INFORMATION
  Report Type: 
  Country: None (occurrence: None)
  Receive Date: 20090917
  Receipt Date: 20090907
  Transmission Date: 20100115
  Serious: Yes (Other)
  Sender: FDA-Public Use
  Company Number: FI-ABBOTT-09P-055-0594264-00

PATIENT
  Sex: Female

DRUGS (1)
  1. HUMIRA [Suspect]
     Indication: RHEUMATOID ARTHRITIS
     Dates: start: 20040101

REACTIONS (3)
  - LYMPHADENOPATHY [None]
  - RHEUMATOID ARTHRITIS [None]
  - TUBERCULOSIS [None]
